FAERS Safety Report 11925083 (Version 2)
Quarter: 2016Q3

REPORT INFORMATION
  Report Type: Report from Study
  Country: PK (occurrence: PK)
  Receive Date: 20160118
  Receipt Date: 20160917
  Transmission Date: 20161109
  Serious: Yes (Death, Hospitalization, Other)
  Sender: FDA-Public Use
  Company Number: PHHY2016PK003704

PATIENT
  Age: 63 Year
  Sex: Male

DRUGS (6)
  1. TRAMAL [Concomitant]
     Active Substance: TRAMADOL
     Indication: PRODUCT USED FOR UNKNOWN INDICATION
     Dosage: UNK
     Route: 065
  2. DIFLUCAN [Concomitant]
     Active Substance: FLUCONAZOLE
     Indication: PRODUCT USED FOR UNKNOWN INDICATION
     Dosage: UNK
     Route: 065
  3. GRAVINATE                          /00674201/ [Concomitant]
     Indication: PRODUCT USED FOR UNKNOWN INDICATION
     Dosage: UNK
     Route: 065
  4. FLAGYL [Concomitant]
     Active Substance: METRONIDAZOLE\METRONIDAZOLE HYDROCHLORIDE
     Indication: PRODUCT USED FOR UNKNOWN INDICATION
     Dosage: UNK
     Route: 065
  5. NORMAL SALINE [Concomitant]
     Active Substance: SODIUM CHLORIDE
     Indication: PRODUCT USED FOR UNKNOWN INDICATION
     Dosage: UNK
     Route: 065
  6. GLIVEC [Suspect]
     Active Substance: IMATINIB MESYLATE
     Indication: GASTROINTESTINAL STROMAL TUMOUR
     Dosage: 400 MG
     Route: 048
     Dates: start: 20121127, end: 20160105

REACTIONS (37)
  - Respiratory failure [Unknown]
  - Sensation of foreign body [Unknown]
  - Wheezing [Unknown]
  - Flushing [Unknown]
  - Urticaria [Unknown]
  - Mass [Unknown]
  - Rectal haemorrhage [Unknown]
  - Sneezing [Unknown]
  - Pruritus [Unknown]
  - Rash [Unknown]
  - Upper airway obstruction [Unknown]
  - Hyperventilation [Unknown]
  - Mouth ulceration [Unknown]
  - Lymphocyte count decreased [Unknown]
  - Platelet count decreased [Unknown]
  - Papule [Unknown]
  - Fixed drug eruption [Unknown]
  - Swelling [Unknown]
  - Cough [Unknown]
  - Nausea [Unknown]
  - Haemoglobin decreased [Unknown]
  - Cardiac failure [Unknown]
  - Stridor [Unknown]
  - Dyspnoea [Unknown]
  - Death [Fatal]
  - Vomiting [Unknown]
  - Therapy non-responder [Unknown]
  - Respiratory distress [Unknown]
  - Chest discomfort [Unknown]
  - Erythema [Unknown]
  - Hypotension [Unknown]
  - Dry mouth [Unknown]
  - Respiratory arrest [Unknown]
  - Asthma [Unknown]
  - Oedema [Unknown]
  - Decreased appetite [Unknown]
  - Cardiac arrest [Unknown]

NARRATIVE: CASE EVENT DATE: 20160110
